FAERS Safety Report 8993395 (Version 1)
Quarter: 2013Q1

REPORT INFORMATION
  Report Type: Spontaneous
  Country: AR (occurrence: AR)
  Receive Date: 20130102
  Receipt Date: 20130102
  Transmission Date: 20140127
  Serious: Yes (Other)
  Sender: FDA-Public Use
  Company Number: AR-PFIZER INC-2013000937

PATIENT
  Age: 85 Year
  Sex: Female

DRUGS (1)
  1. DALACIN C [Suspect]
     Indication: LIMB INJURY
     Dosage: UNK

REACTIONS (2)
  - Disorientation [Unknown]
  - Confusional state [Unknown]
